FAERS Safety Report 12733892 (Version 1)
Quarter: 2016Q3

REPORT INFORMATION
  Report Type: Spontaneous
  Country: DE (occurrence: DE)
  Receive Date: 20160912
  Receipt Date: 20160912
  Transmission Date: 20161109
  Serious: Yes (Death, Hospitalization)
  Sender: FDA-Public Use
  Company Number: DE-ROCHE-1826349

PATIENT
  Age: 61 Year
  Sex: Female

DRUGS (10)
  1. RITUXIMAB [Suspect]
     Active Substance: RITUXIMAB
     Dosage: MAINTENANCE THERAPY ?IN TOTAL, 15 STANDARD DOSES OF RITUXIMAB HAD BEEN ADMINISTERED
     Route: 042
  2. VINCRISTINE [Suspect]
     Active Substance: VINCRISTINE
     Indication: BREAST CANCER
     Route: 065
  3. INTERFERON ALFA-2A [Concomitant]
     Active Substance: INTERFERON ALFA-2A
     Indication: BREAST CANCER
     Route: 065
  4. PREDNISOLONE. [Suspect]
     Active Substance: PREDNISOLONE
     Indication: BREAST CANCER
     Route: 065
  5. CYCLOPHOSPHAMIDE. [Suspect]
     Active Substance: CYCLOPHOSPHAMIDE
     Indication: BREAST CANCER
     Route: 065
  6. DOXORUBICIN [Suspect]
     Active Substance: DOXORUBICIN
     Indication: BREAST CANCER
     Route: 065
  7. FLUDARABINE [Suspect]
     Active Substance: FLUDARABINE PHOSPHATE
     Indication: BREAST CANCER
     Route: 065
  8. RITUXIMAB [Suspect]
     Active Substance: RITUXIMAB
     Indication: BREAST CANCER
     Dosage: AFTER 6 COURSES, A COMPLETE REMISSION WAS AGAIN ACHIEVED.
     Route: 042
  9. MITOXANTRONE [Suspect]
     Active Substance: MITOXANTRONE HYDROCHLORIDE
     Indication: BREAST CANCER
     Route: 065
  10. BENDAMUSTINE [Suspect]
     Active Substance: BENDAMUSTINE
     Indication: BREAST CANCER
     Dosage: AFTER 6 COURSES OF MONOTHERAPY WITH BENDAMUSTINE, A COMPLETE REMISSION WAS ONCE MORE ACHIEVED.
     Route: 065

REACTIONS (1)
  - Progressive multifocal leukoencephalopathy [Fatal]
